FAERS Safety Report 14128549 (Version 1)
Quarter: 2017Q4

REPORT INFORMATION
  Report Type: Spontaneous
  Country: FR (occurrence: FR)
  Receive Date: 20171026
  Receipt Date: 20171026
  Transmission Date: 20180321
  Serious: Yes (Other)
  Sender: FDA-Public Use
  Company Number: FR-PFIZER INC-2017455714

PATIENT
  Sex: Male

DRUGS (1)
  1. CYTOTEC [Suspect]
     Active Substance: MISOPROSTOL
     Indication: LABOUR INDUCTION
     Dosage: UNK, (SINGLE DOSE)
     Route: 064
     Dates: start: 2015, end: 2015

REACTIONS (3)
  - Developmental delay [Unknown]
  - Neuromyopathy [Unknown]
  - Strabismus [Unknown]

NARRATIVE: CASE EVENT DATE: 2015
